FAERS Safety Report 9284443 (Version 1)
Quarter: 2013Q2

REPORT INFORMATION
  Report Type: Spontaneous
  Country: CH (occurrence: CH)
  Receive Date: 20130510
  Receipt Date: 20130510
  Transmission Date: 20140414
  Serious: Yes (Hospitalization)
  Sender: FDA-Public Use
  Company Number: CH-PFIZER INC-2013145822

PATIENT
  Age: 69 Year
  Sex: Female
  Weight: 105.6 kg

DRUGS (17)
  1. CELEBREX [Suspect]
     Indication: CARPAL TUNNEL SYNDROME
     Dosage: UNK
     Route: 048
     Dates: end: 20130305
  2. CORDARONE [Suspect]
     Indication: ATRIAL FLUTTER
     Dosage: 200 MG, 1X/DAY
     Route: 048
     Dates: start: 201204
  3. CORDARONE [Suspect]
     Indication: HYPERTENSIVE HEART DISEASE
     Dosage: 100 MILLIGRAM(S), DAILY
     Route: 048
  4. DAFALGAN [Suspect]
     Indication: PAIN
     Dosage: 1 G, AS NEEDED
     Route: 048
  5. DAFALGAN [Suspect]
     Indication: CARPAL TUNNEL SYNDROME
  6. CO-DAFALGAN [Suspect]
     Indication: CARPAL TUNNEL SYNDROME
     Dosage: 1 DF (500MG/30MG), 3X/DAY
     Route: 048
     Dates: start: 201210, end: 20130305
  7. NOVALGIN [Suspect]
     Indication: PAIN
     Dosage: 1 G, AS NEEDED
     Route: 048
     Dates: start: 201210, end: 20130305
  8. NOVALGIN [Suspect]
     Indication: CARPAL TUNNEL SYNDROME
  9. SORTIS [Concomitant]
     Dosage: 10 MG, 1X/DAY
     Route: 048
  10. TOREM [Concomitant]
     Dosage: 5 MG, 1X/DAY
     Route: 048
     Dates: end: 20130305
  11. JANUVIA [Concomitant]
     Dosage: 50 MG, 1X/DAY
     Route: 048
  12. MADOPAR [Concomitant]
     Dosage: 125 MG, 3X/DAY
     Route: 048
  13. PANTOPRAZOLE [Concomitant]
     Dosage: 40 MG, 1X/DAY
     Route: 048
  14. TRANXILIUM [Concomitant]
     Dosage: 10 MG, 2X/DAY
     Route: 048
  15. CIPRALEX [Concomitant]
     Dosage: 10 MG, 1X/DAY
     Route: 048
  16. STILNOX [Concomitant]
     Dosage: 10 MG, 1X/DAY
  17. DOXIUM [Concomitant]
     Dosage: 500 MG, 1X/DAY
     Route: 048
     Dates: end: 20130305

REACTIONS (6)
  - Renal failure chronic [Recovering/Resolving]
  - Anaemia [Recovering/Resolving]
  - Hypothyroidism [Recovering/Resolving]
  - Drug abuser [Recovering/Resolving]
  - Asthenia [Recovering/Resolving]
  - Dizziness [Recovering/Resolving]
